FAERS Safety Report 16336010 (Version 1)
Quarter: 2019Q2

REPORT INFORMATION
  Report Type: Spontaneous
  Country: EG (occurrence: EG)
  Receive Date: 20190521
  Receipt Date: 20190521
  Transmission Date: 20190711
  Serious: Yes (Other)
  Sender: FDA-Public Use
  Company Number: EG-HIKMA PHARMACEUTICALS USA INC.-EG-H14001-19-03401

PATIENT
  Age: 28 Year
  Sex: Female

DRUGS (2)
  1. GEMZAR [Suspect]
     Active Substance: GEMCITABINE HYDROCHLORIDE
     Indication: BREAST CANCER
     Dosage: VIAL CONCENTRATION: 1 G
     Route: 041
     Dates: start: 20181113
  2. CARBOTINOL [Suspect]
     Active Substance: CARBOPLATIN
     Indication: BREAST CANCER
     Dosage: VIAL CONCENTRATION: 150 MG/15 ML
     Route: 041
     Dates: start: 20181113

REACTIONS (2)
  - Neutropenia [Unknown]
  - Drug interaction [Unknown]

NARRATIVE: CASE EVENT DATE: 20190114
